FAERS Safety Report 15623627 (Version 1)
Quarter: 2018Q4

REPORT INFORMATION
  Report Type: Spontaneous
  Country: US (occurrence: US)
  Receive Date: 20181115
  Receipt Date: 20181115
  Transmission Date: 20190205
  Serious: No
  Sender: FDA-Public Use
  Company Number: US-BAYER-2018-211928

PATIENT
  Age: 58 Year
  Sex: Female

DRUGS (1)
  1. BETASERON [Suspect]
     Active Substance: INTERFERON BETA-1B
     Indication: MULTIPLE SCLEROSIS
     Dosage: 0.25 MG, UNK
     Dates: start: 200210

REACTIONS (6)
  - Hepatic enzyme increased [None]
  - Dyspnoea [None]
  - Injection site bruising [None]
  - Palpitations [None]
  - Hypothyroidism [None]
  - Chest pain [None]

NARRATIVE: CASE EVENT DATE: 200210
